FAERS Safety Report 7386835-4 (Version None)
Quarter: 2011Q1

REPORT INFORMATION
  Report Type: 
  Country: None (occurrence: None)
  Receive Date: 20110331
  Receipt Date: 20110326
  Transmission Date: 20110831
  Serious: Yes (Other)
  Sender: FDA-Public Use
  Company Number: IT-PFIZER INC-2011067801

PATIENT
  Age: 68 Year
  Sex: Female

DRUGS (3)
  1. HUMIRA [Suspect]
     Indication: RHEUMATOID ARTHRITIS
     Dosage: 1 UNIT DOSE, WEEKLY
     Route: 058
     Dates: start: 20110205, end: 20110305
  2. LORTAAN [Concomitant]
     Route: 048
  3. MEDROL [Suspect]
     Indication: RHEUMATOID ARTHRITIS
     Dosage: 4 MG, DAILY
     Route: 048
     Dates: start: 20110105, end: 20110305

REACTIONS (2)
  - DIZZINESS [None]
  - HYPERTENSION [None]
